FAERS Safety Report 4811341-8 (Version None)
Quarter: 2005Q4

REPORT INFORMATION
  Report Type: 
  Country: None (occurrence: None)
  Receive Date: 20051026
  Receipt Date: 20051026
  Transmission Date: 20060501
  Serious: Yes (Other)
  Sender: FDA-Public Use
  Company Number: None

PATIENT
  Age: 9 Year
  Sex: Female
  Weight: 22.6799 kg

DRUGS (1)
  1. STRATTERA [Suspect]
     Indication: ATTENTION DEFICIT/HYPERACTIVITY DISORDER
     Dosage: 25MG DAILY PO
     Route: 048
     Dates: start: 20031101, end: 20041219

REACTIONS (8)
  - AFFECT LABILITY [None]
  - AGGRESSION [None]
  - DISTURBANCE IN ATTENTION [None]
  - DRUG TOXICITY [None]
  - EDUCATIONAL PROBLEM [None]
  - MORBID THOUGHTS [None]
  - SUICIDAL IDEATION [None]
  - TREATMENT NONCOMPLIANCE [None]
